FAERS Safety Report 19494523 (Version 1)
Quarter: 2021Q3

REPORT INFORMATION
  Report Type: Spontaneous
  Country: DE (occurrence: DE)
  Receive Date: 20210705
  Receipt Date: 20210705
  Transmission Date: 20211014
  Serious: Yes (Other)
  Sender: FDA-Public Use
  Company Number: NVSC2021DE141453

PATIENT
  Age: 6 Decade
  Sex: Female

DRUGS (5)
  1. FUROSEMID [Suspect]
     Active Substance: FUROSEMIDE
     Indication: RENAL IMPAIRMENT
     Dosage: 40 MG, QD (TAKEN SINCE 25 ? 30 YEARS (UNKNOWN IF ONLY RATIOPHARM WAS USED), IN THE EVENING)
     Route: 048
     Dates: start: 1996, end: 2016
  2. IODIDE [Concomitant]
     Active Substance: IODINE
     Indication: THYROID DISORDER
     Dosage: UNK (30)
     Route: 065
  3. FUROSEMID [Suspect]
     Active Substance: FUROSEMIDE
     Indication: DYSURIA
     Dosage: 40 MG, QD (FUROSEMID RATIOPHARM 40MG WAS TAKEN FOR ONE WEEK)
     Route: 048
     Dates: start: 202106, end: 202106
  4. LEVEMIR [Concomitant]
     Active Substance: INSULIN DETEMIR
     Indication: TYPE 1 DIABETES MELLITUS
     Dosage: UNK (LONG ACTING)
     Route: 065
  5. BERLINSULIN [Concomitant]
     Active Substance: INSULIN HUMAN
     Indication: TYPE 1 DIABETES MELLITUS
     Dosage: UNK (SHORT ACTING)
     Route: 065

REACTIONS (2)
  - Dependence [Unknown]
  - Renal function test abnormal [Unknown]

NARRATIVE: CASE EVENT DATE: 2021
